FAERS Safety Report 6527697-4 (Version None)
Quarter: 2010Q1

REPORT INFORMATION
  Report Type: 
  Country: None (occurrence: None)
  Receive Date: 20100106
  Receipt Date: 20091223
  Transmission Date: 20100710
  Serious: Yes (Death, Hospitalization)
  Sender: FDA-Public Use
  Company Number: GB-RANBAXY-2009RR-30167

PATIENT
  Age: 53 Year
  Sex: Male

DRUGS (4)
  1. SIMVASTATIN [Suspect]
     Indication: BLOOD CHOLESTEROL ABNORMAL
     Route: 048
  2. ASPIRIN [Concomitant]
     Route: 065
  3. DIPYRIDAMOLE [Concomitant]
     Route: 065
  4. WARFARIN SODIUM [Concomitant]

REACTIONS (2)
  - ANTIPHOSPHOLIPID SYNDROME [None]
  - MELAENA [None]
